FAERS Safety Report 8185884-6 (Version None)
Quarter: 2012Q1

REPORT INFORMATION
  Report Type: 
  Country: None (occurrence: None)
  Receive Date: 20120305
  Receipt Date: 20120125
  Transmission Date: 20120608
  Serious: Yes (Hospitalization, Other)
  Sender: FDA-Public Use
  Company Number: US-ROCHE-794615

PATIENT
  Sex: Female
  Weight: 76.726 kg

DRUGS (2)
  1. ACCUTANE [Suspect]
     Dates: start: 19980101, end: 19990701
  2. ACCUTANE [Suspect]
     Indication: ACNE
     Route: 065
     Dates: start: 19970101, end: 19980101

REACTIONS (13)
  - DEPRESSION [None]
  - COLITIS ULCERATIVE [None]
  - INTESTINAL HAEMORRHAGE [None]
  - CROHN'S DISEASE [None]
  - IRRITABLE BOWEL SYNDROME [None]
  - PALPITATIONS [None]
  - ANAL ABSCESS [None]
  - SUICIDAL IDEATION [None]
  - ANAL FISTULA [None]
  - HYPERTRIGLYCERIDAEMIA [None]
  - MENTAL DISORDER [None]
  - INTESTINAL OBSTRUCTION [None]
  - INFLAMMATORY BOWEL DISEASE [None]
